FAERS Safety Report 7000148-1 (Version None)
Quarter: 2010Q3

REPORT INFORMATION
  Report Type: 
  Country: None (occurrence: None)
  Receive Date: 20100920
  Receipt Date: 20100517
  Transmission Date: 20110219
  Serious: No
  Sender: FDA-Public Use
  Company Number: US-ASTRAZENECA-2010SE22446

PATIENT
  Sex: Male
  Weight: 113.4 kg

DRUGS (4)
  1. SEROQUEL XR [Suspect]
     Indication: SCHIZOPHRENIA, PARANOID TYPE
     Dosage: 100 MG IN MORNING, 100 MG AT 2 PM AND 400 MG AT BEDTIME
     Route: 048
     Dates: start: 20081201
  2. SEROQUEL XR [Suspect]
     Indication: BIPOLAR DISORDER
     Dosage: 100 MG IN MORNING, 100 MG AT 2 PM AND 400 MG AT BEDTIME
     Route: 048
     Dates: start: 20081201
  3. SEROQUEL XR [Suspect]
     Route: 048
  4. SEROQUEL XR [Suspect]
     Route: 048

REACTIONS (5)
  - ASOCIAL BEHAVIOUR [None]
  - DELUSION [None]
  - DRUG DOSE OMISSION [None]
  - HALLUCINATION, VISUAL [None]
  - INSOMNIA [None]
